FAERS Safety Report 9218318 (Version 2)
Quarter: 2013Q2

REPORT INFORMATION
  Report Type: Spontaneous
  Country: US (occurrence: US)
  Receive Date: 20130409
  Receipt Date: 20130501
  Transmission Date: 20140414
  Serious: Yes (Hospitalization)
  Sender: FDA-Public Use
  Company Number: US-BIOGENIDEC-2013BI030439

PATIENT
  Age: 70 Year
  Sex: Female

DRUGS (1)
  1. TYSABRI [Suspect]
     Indication: MULTIPLE SCLEROSIS
     Route: 042
     Dates: start: 20061019

REACTIONS (4)
  - Urinary incontinence [Unknown]
  - Cystitis [Unknown]
  - Cerebrovascular accident [Recovered/Resolved]
  - Urosepsis [Recovered/Resolved]
